FAERS Safety Report 8324916-9 (Version None)
Quarter: 2012Q2

REPORT INFORMATION
  Report Type: 
  Country: None (occurrence: None)
  Receive Date: 20120501
  Receipt Date: 20120427
  Transmission Date: 20120825
  Serious: Yes (Other)
  Sender: FDA-Public Use
  Company Number: US-B.I. PHARMACEUTICALS,INC./RIDGEFIELD-2012-BP-09682BP

PATIENT
  Sex: Female

DRUGS (7)
  1. BENADRYL [Concomitant]
     Indication: INSOMNIA
     Dosage: 75 MG
     Route: 048
  2. ORAL MAGIC MOUTH WASH [Concomitant]
     Indication: ORAL PAIN
     Route: 048
  3. AMBIEN [Concomitant]
     Indication: INSOMNIA
     Dosage: 10 MG
     Route: 048
  4. EFFEXOR [Concomitant]
     Indication: ANXIETY
     Dosage: 300 MG
     Route: 048
  5. SPIRIVA [Suspect]
     Indication: CHRONIC OBSTRUCTIVE PULMONARY DISEASE
     Dosage: 18 MCG
     Route: 055
     Dates: start: 20090101
  6. PERCOCET [Concomitant]
     Indication: PAIN
     Route: 048
  7. XANAX [Concomitant]
     Indication: ANXIETY
     Dosage: 3 MG
     Route: 048

REACTIONS (1)
  - LUNG NEOPLASM MALIGNANT [None]
